FAERS Safety Report 18303133 (Version 1)
Quarter: 2020Q3

REPORT INFORMATION
  Report Type: Spontaneous
  Country: US (occurrence: US)
  Receive Date: 20200923
  Receipt Date: 20200923
  Transmission Date: 20201103
  Serious: Yes (Death, Other)
  Sender: FDA-Public Use
  Company Number: US-EPIC PHARMA LLC-2020EPC00281

PATIENT
  Age: 57 Year
  Sex: Female
  Weight: 44.44 kg

DRUGS (4)
  1. OXYMORPHONE [Suspect]
     Active Substance: OXYMORPHONE
     Indication: FIBROMYALGIA
     Route: 048
  2. OXYMORPHONE [Suspect]
     Active Substance: OXYMORPHONE
     Indication: SYSTEMIC LUPUS ERYTHEMATOSUS
  3. OXYCODONE/ACETAMINOPHEN [Suspect]
     Active Substance: ACETAMINOPHEN\OXYCODONE HYDROCHLORIDE
     Route: 048
  4. OXYCODONE [Suspect]
     Active Substance: OXYCODONE
     Dosage: 80 MG, 3X/DAY
     Route: 048

REACTIONS (12)
  - Brain herniation [Unknown]
  - Dependence [Fatal]
  - Emphysema [Unknown]
  - Brain oedema [Unknown]
  - Asthma [Unknown]
  - Hypertension [Unknown]
  - Overdose [Fatal]
  - Pulmonary oedema [Unknown]
  - Nephrosclerosis [Unknown]
  - Cardiac valve disease [Unknown]
  - Unevaluable event [Unknown]
  - Unresponsive to stimuli [Unknown]

NARRATIVE: CASE EVENT DATE: 20050920
